FAERS Safety Report 12339747 (Version 5)
Quarter: 2016Q3

REPORT INFORMATION
  Report Type: Report from Study
  Country: AU (occurrence: AU)
  Receive Date: 20160506
  Receipt Date: 20160712
  Transmission Date: 20161109
  Serious: Yes (Hospitalization, Other)
  Sender: FDA-Public Use
  Company Number: AU-ROCHE-1752771

PATIENT
  Age: 73 Year
  Sex: Male

DRUGS (3)
  1. ACTEMRA [Suspect]
     Active Substance: TOCILIZUMAB
     Indication: RHEUMATOID ARTHRITIS
     Route: 042
     Dates: start: 20130307
  2. DURIDE [Concomitant]
     Dosage: ONGOING
     Route: 048
  3. ACTEMRA [Suspect]
     Active Substance: TOCILIZUMAB
     Dosage: ONGOING
     Route: 042
     Dates: start: 20151115

REACTIONS (7)
  - Cardiac failure [Recovered/Resolved]
  - Infection [Unknown]
  - Anaemia [Unknown]
  - Body temperature increased [Unknown]
  - Heart rate increased [Unknown]
  - Dyspnoea [Unknown]
  - Weight decreased [Unknown]

NARRATIVE: CASE EVENT DATE: 20160503
